FAERS Safety Report 25373039 (Version 3)
Quarter: 2025Q3

REPORT INFORMATION
  Report Type: Spontaneous
  Country: EU (occurrence: EU)
  Receive Date: 20250529
  Receipt Date: 20250823
  Transmission Date: 20251021
  Serious: Yes (Hospitalization, Other)
  Sender: AUROBINDO
  Company Number: EU-SERB-2025022296

PATIENT
  Age: 6 Decade
  Sex: Male

DRUGS (12)
  1. ROSUVASTATIN CALCIUM [Suspect]
     Active Substance: ROSUVASTATIN CALCIUM
     Indication: Dyslipidaemia
     Dosage: 10 MILLIGRAM, ONCE A DAY (10 MILLIGRAM, 1/DAY)
     Route: 065
  2. FLUOXETINE [Suspect]
     Active Substance: FLUOXETINE HYDROCHLORIDE
     Indication: Depression
     Route: 065
  3. OLANZAPINE [Suspect]
     Active Substance: OLANZAPINE
     Indication: Bipolar I disorder
     Dosage: 10 MILLIGRAM, ONCE A DAY
     Route: 065
  4. OLANZAPINE [Suspect]
     Active Substance: OLANZAPINE
     Indication: Mania
     Dosage: 15 MILLIGRAM, ONCE A DAY (REDUCED TO 15 MG/D AT BEDTIME)
     Route: 065
  5. OLANZAPINE [Suspect]
     Active Substance: OLANZAPINE
     Dosage: 20 MILLIGRAM, ONCE A DAY
     Route: 065
  6. VALPROIC ACID [Suspect]
     Active Substance: VALPROIC ACID
     Indication: Mania
     Dosage: 1500 MILLIGRAM, ONCE A DAY (3MONTHS)
     Route: 065
  7. VALPROIC ACID [Suspect]
     Active Substance: VALPROIC ACID
     Indication: Bipolar I disorder
  8. PRIMIDONE [Suspect]
     Active Substance: PRIMIDONE
     Indication: Essential tremor
     Dosage: 125 MILLIGRAM, ONCE A DAY INCREASING THE DOSE TO 187.5 MG/D 2 WEEKS LATER
     Route: 065
  9. PRIMIDONE [Suspect]
     Active Substance: PRIMIDONE
     Dosage: 187.5 MILLIGRAM, ONCE A DAY
     Route: 065
  10. PRIMIDONE [Suspect]
     Active Substance: PRIMIDONE
     Route: 065
  11. PROPRANOLOL [Concomitant]
     Active Substance: PROPRANOLOL HYDROCHLORIDE
     Indication: Essential tremor
     Dosage: 20 MILLIGRAM, ONCE A DAY
     Route: 065
  12. PROPRANOLOL [Concomitant]
     Active Substance: PROPRANOLOL HYDROCHLORIDE
     Dosage: 40 MILLIGRAM, ONCE A DAY
     Route: 065

REACTIONS (11)
  - Bipolar I disorder [Recovering/Resolving]
  - Mania [Recovered/Resolved]
  - Drug interaction [Unknown]
  - Dysarthria [Unknown]
  - Tremor [Unknown]
  - Somnolence [Unknown]
  - Psychomotor retardation [Unknown]
  - Increased appetite [Unknown]
  - Weight increased [Unknown]
  - Drug effective for unapproved indication [Unknown]
  - Product use in unapproved indication [Unknown]
